FAERS Safety Report 6983550-3 (Version None)
Quarter: 2010Q3

REPORT INFORMATION
  Report Type: 
  Country: None (occurrence: None)
  Receive Date: 20100914
  Receipt Date: 20080806
  Transmission Date: 20110219
  Serious: No
  Sender: FDA-Public Use
  Company Number: US-WYE-H05442908

PATIENT
  Age: 54 Year
  Sex: Female
  Weight: 57.2 kg

DRUGS (5)
  1. ADVIL LIQUI-GELS [Suspect]
     Indication: PRODUCT USED FOR UNKNOWN INDICATION
     Dosage: 1 CAPSULE AS NEEDED
     Route: 048
  2. CENTRUM SILVER [Suspect]
     Indication: NUTRITIONAL SUPPORT
     Route: 048
     Dates: start: 20070101
  3. PREMARIN [Concomitant]
  4. IRON [Concomitant]
  5. CALTRATE 600 + VITAMIN D [Suspect]
     Indication: NUTRITIONAL SUPPORT
     Route: 048

REACTIONS (1)
  - COELIAC DISEASE [None]
